FAERS Safety Report 7645859-X (Version None)
Quarter: 2011Q3

REPORT INFORMATION
  Report Type: 
  Country: None (occurrence: None)
  Receive Date: 20110729
  Receipt Date: 20110706
  Transmission Date: 20111222
  Serious: Yes (Hospitalization)
  Sender: FDA-Public Use
  Company Number: JP-ALLERGAN-1109930US

PATIENT
  Age: 81 Year
  Sex: Female

DRUGS (3)
  1. LUMIGAN [Suspect]
     Indication: GLAUCOMA
     Dosage: 2 GTT, QD
     Route: 047
     Dates: start: 20100628, end: 20110215
  2. GLIMEPIRIDE [Concomitant]
  3. LUMIGAN [Suspect]
     Dosage: 1 GTT, QD
     Route: 047

REACTIONS (1)
  - INTRAOCULAR PRESSURE INCREASED [None]
